FAERS Safety Report 23059904 (Version 2)
Quarter: 2023Q4

REPORT INFORMATION
  Report Type: Spontaneous
  Country: BR (occurrence: BR)
  Receive Date: 20231012
  Receipt Date: 20231020
  Transmission Date: 20240109
  Serious: Yes (Hospitalization, Other)
  Sender: FDA-Public Use
  Company Number: BR-GLAXOSMITHKLINE-BR2023AMR137455

PATIENT

DRUGS (5)
  1. ZEJULA [Suspect]
     Active Substance: NIRAPARIB
     Indication: Ovarian cancer
     Dosage: 3 DF, QD
     Dates: start: 202208
  2. ZEJULA [Suspect]
     Active Substance: NIRAPARIB
     Dosage: 3 DF, QD
  3. ESCITALOPRAM [Concomitant]
     Active Substance: ESCITALOPRAM OXALATE
     Indication: Product used for unknown indication
     Dosage: 20 MG
  4. OMEPRAZOLE [Concomitant]
     Active Substance: OMEPRAZOLE
     Indication: Product used for unknown indication
     Dosage: UNK
  5. OMEPRAZOLE [Concomitant]
     Active Substance: OMEPRAZOLE
     Dosage: 40 MG

REACTIONS (5)
  - Infection [Recovering/Resolving]
  - Device related sepsis [Unknown]
  - Thrombocytopenia [Unknown]
  - Pneumonia [Unknown]
  - Product storage error [Unknown]

NARRATIVE: CASE EVENT DATE: 20231002
